FAERS Safety Report 8995591 (Version 2)
Quarter: 2013Q3

REPORT INFORMATION
  Report Type: Spontaneous
  Country: US (occurrence: US)
  Receive Date: 20130103
  Receipt Date: 20130725
  Transmission Date: 20140515
  Serious: No
  Sender: FDA-Public Use
  Company Number: US-ABBOTT-12P-163-1018799-00

PATIENT
  Age: 71 Year
  Sex: Female
  Weight: 59.93 kg

DRUGS (7)
  1. SYNTHROID [Suspect]
     Indication: HYPOTHYROIDISM
     Route: 048
     Dates: start: 20121027
  2. ESTRADIOL [Concomitant]
     Indication: POSTMENOPAUSE
     Route: 048
  3. PROGESTERONE [Concomitant]
     Indication: POSTMENOPAUSE
  4. SOY LETHICIN [Concomitant]
  5. MAGNESIUM [Concomitant]
     Indication: MINERAL SUPPLEMENTATION
  6. PROGESTRIN COMPOUND CREAM [Concomitant]
     Route: 061
  7. XOPENEX [Concomitant]
     Dosage: AS REQUIRED PRIOR TO EXERCISE

REACTIONS (4)
  - Feeling hot [Not Recovered/Not Resolved]
  - Feeling hot [Not Recovered/Not Resolved]
  - Hypertension [Not Recovered/Not Resolved]
  - Headache [Not Recovered/Not Resolved]
